FAERS Safety Report 11246481 (Version 1)
Quarter: 2015Q3

REPORT INFORMATION
  Report Type: Spontaneous
  Country: FR (occurrence: None)
  Receive Date: 20150706
  Receipt Date: 20150706
  Transmission Date: 20151125
  Serious: No
  Sender: FDA-Public Use
  Company Number: None

PATIENT
  Age: 63 Year
  Sex: Male
  Weight: 92.08 kg

DRUGS (9)
  1. SPIRIVA RESPIMAT [Concomitant]
     Active Substance: TIOTROPIUM BROMIDE
  2. PULMICORT TURBUHALER [Concomitant]
     Active Substance: BUDESONIDE
  3. XARELTO [Suspect]
     Active Substance: RIVAROXABAN
     Indication: DEEP VEIN THROMBOSIS
     Dosage: IN THE EVENING, AT BEDTIME, TAKEN BY MOUTH
     Dates: start: 20150601, end: 20150702
  4. CARDIZEM [Concomitant]
     Active Substance: DILTIAZEM HYDROCHLORIDE
  5. LIPITOR [Concomitant]
     Active Substance: ATORVASTATIN CALCIUM
  6. ACEON [Concomitant]
     Active Substance: PERINDOPRIL ERBUMINE
  7. IMDUR [Concomitant]
     Active Substance: ISOSORBIDE MONONITRATE
  8. XARELTO [Suspect]
     Active Substance: RIVAROXABAN
     Indication: FIBRIN D DIMER INCREASED
     Dosage: IN THE EVENING, AT BEDTIME, TAKEN BY MOUTH
     Dates: start: 20150601, end: 20150702
  9. LASIX [Concomitant]
     Active Substance: FUROSEMIDE

REACTIONS (5)
  - Diabetes mellitus [None]
  - Hyperhidrosis [None]
  - Nausea [None]
  - Vision blurred [None]
  - Condition aggravated [None]

NARRATIVE: CASE EVENT DATE: 20150701
